FAERS Safety Report 5332141-9 (Version None)
Quarter: 2007Q2

REPORT INFORMATION
  Report Type: 
  Country: None (occurrence: None)
  Receive Date: 20070523
  Receipt Date: 20070515
  Transmission Date: 20071010
  Serious: Yes (Hospitalization)
  Sender: FDA-Public Use
  Company Number: US-ROCHE-497683

PATIENT
  Age: 47 Year
  Sex: Male
  Weight: 62 kg

DRUGS (3)
  1. XELODA [Suspect]
     Indication: RECTAL CANCER
     Dosage: FREQUENCY REPORTED AS BID/D1-14/Q3W.
     Route: 048
     Dates: start: 20070404, end: 20070412
  2. BEVACIZUMAB [Suspect]
     Indication: RECTAL CANCER
     Dosage: FREQUENCY REPORTED AS GIVEN ON DAYS 1+15.
     Route: 042
     Dates: start: 20070404, end: 20070404
  3. OXALIPLATIN [Suspect]
     Indication: RECTAL CANCER
     Dosage: FREQUENCY REPORTED AS GIVEN ON DAYS 1+15.
     Route: 042
     Dates: start: 20070404, end: 20070404

REACTIONS (1)
  - IMPAIRED HEALING [None]
